FAERS Safety Report 8801591 (Version 2)
Quarter: 2012Q4

REPORT INFORMATION
  Report Type: 
  Country: US (occurrence: US)
  Receive Date: 20120921
  Receipt Date: 20121023
  Transmission Date: 20130627
  Serious: Yes (Hospitalization)
  Sender: FDA-Public Use
  Company Number: US-BAYER-2012-098085

PATIENT
  Age: 33 Year
  Sex: Female

DRUGS (5)
  1. YAZ [Suspect]
     Dosage: UNK
     Dates: start: 20071118, end: 20071123
  2. YASMIN [Suspect]
     Dosage: UNK
     Dates: end: 20071124
  3. OCELLA [Suspect]
  4. KEFLEX [Concomitant]
     Dosage: 500 mg, TID
  5. MULTIVITAMIN [Concomitant]
     Route: 048

REACTIONS (2)
  - Injury [None]
  - Non-cardiac chest pain [None]
